FAERS Safety Report 7935290-1 (Version None)
Quarter: 2011Q4

REPORT INFORMATION
  Report Type: 
  Country: None (occurrence: None)
  Receive Date: 20111122
  Receipt Date: 20111111
  Transmission Date: 20120403
  Serious: Yes (Hospitalization, Other)
  Sender: FDA-Public Use
  Company Number: DE-ELI_LILLY_AND_COMPANY-DE201111003622

PATIENT
  Age: 73 Year
  Sex: Male

DRUGS (4)
  1. MORPHINE [Concomitant]
  2. CORTISONE ACETATE [Concomitant]
     Dosage: UNK, EACH MORNING
  3. FORTEO [Suspect]
     Indication: OSTEOPOROSIS
     Dosage: UNK, QD
     Route: 058
     Dates: start: 20110809
  4. CORTISONE ACETATE [Concomitant]
     Dosage: UNK, EACH EVENING

REACTIONS (4)
  - LOSS OF CONSCIOUSNESS [None]
  - FALL [None]
  - ARTHROPATHY [None]
  - HIP SURGERY [None]
